FAERS Safety Report 10767889 (Version 2)
Quarter: 2017Q1

REPORT INFORMATION
  Report Type: Other
  Country: US (occurrence: US)
  Receive Date: 20150205
  Receipt Date: 20170212
  Transmission Date: 20170428
  Serious: Yes (Hospitalization)
  Sender: FDA-Public Use
  Company Number: US-ACORDA-ACO_103789_2014

PATIENT
  Age: 71 Year
  Sex: Female

DRUGS (7)
  1. AMPYRA [Suspect]
     Active Substance: DALFAMPRIDINE
     Indication: GAIT DISTURBANCE
     Dosage: 10 MG, BID
     Route: 048
     Dates: end: 201311
  2. AMPYRA [Suspect]
     Active Substance: DALFAMPRIDINE
     Dosage: 10 MG, BID
     Route: 048
     Dates: start: 201406
  3. REBIF [Concomitant]
     Active Substance: INTERFERON BETA-1A
     Indication: MULTIPLE SCLEROSIS
     Dosage: UNK
     Route: 065
     Dates: end: 201311
  4. REBIF [Concomitant]
     Active Substance: INTERFERON BETA-1A
     Dosage: UNK
     Route: 065
     Dates: start: 2013, end: 201312
  5. AMPYRA [Suspect]
     Active Substance: DALFAMPRIDINE
     Dosage: 10 MG, BID
     Route: 048
     Dates: start: 2013, end: 201312
  6. AMPYRA [Suspect]
     Active Substance: DALFAMPRIDINE
     Dosage: 10 MG, BID
     Route: 048
     Dates: end: 201405
  7. REBIF [Concomitant]
     Active Substance: INTERFERON BETA-1A
     Dosage: UNK
     Route: 065
     Dates: start: 201312

REACTIONS (12)
  - Muscle spasms [Unknown]
  - Therapy cessation [Recovered/Resolved]
  - Duodenal ulcer haemorrhage [Recovered/Resolved]
  - Pain [Not Recovered/Not Resolved]
  - Duodenal ulcer haemorrhage [Recovered/Resolved]
  - Gait disturbance [Recovering/Resolving]
  - Insomnia [Recovered/Resolved]
  - Asthenia [Recovered/Resolved]
  - Pain in extremity [Not Recovered/Not Resolved]
  - Therapy cessation [Recovered/Resolved]
  - Feeling abnormal [Recovered/Resolved]
  - Muscle spasms [Recovered/Resolved]

NARRATIVE: CASE EVENT DATE: 2013
